FAERS Safety Report 20535616 (Version 1)
Quarter: 2022Q1

REPORT INFORMATION
  Report Type: Spontaneous
  Country: CN (occurrence: CN)
  Receive Date: 20220302
  Receipt Date: 20220302
  Transmission Date: 20220424
  Serious: Yes (Other)
  Sender: FDA-Public Use
  Company Number: CN-BAYER-2021A215321

PATIENT
  Age: 83 Year
  Sex: Female
  Weight: 50 kg

DRUGS (1)
  1. XARELTO [Suspect]
     Active Substance: RIVAROXABAN
     Indication: Anticoagulant therapy
     Dosage: 20 MG, QD
     Route: 048
     Dates: start: 20210805, end: 20210902

REACTIONS (10)
  - Upper gastrointestinal haemorrhage [Recovering/Resolving]
  - Contusion [Recovering/Resolving]
  - Ecchymosis [Recovering/Resolving]
  - Incorrect dose administered [Unknown]
  - Product prescribing issue [Unknown]
  - Inappropriate schedule of product administration [Unknown]
  - Melaena [Recovering/Resolving]
  - Abdominal discomfort [Recovering/Resolving]
  - Nausea [Recovering/Resolving]
  - Anaemia [Recovering/Resolving]

NARRATIVE: CASE EVENT DATE: 20210805
